FAERS Safety Report 5726179-7 (Version None)
Quarter: 2008Q2

REPORT INFORMATION
  Report Type: 
  Country: None (occurrence: None)
  Receive Date: 20080502
  Receipt Date: 20080425
  Transmission Date: 20081010
  Serious: Yes (Hospitalization)
  Sender: FDA-Public Use
  Company Number: DE-BRISTOL-MYERS SQUIBB COMPANY-14131015

PATIENT
  Age: 55 Year
  Sex: Male

DRUGS (3)
  1. CETUXIMAB [Suspect]
     Indication: NON-SMALL CELL LUNG CANCER
     Dosage: STRENGTH: 5 MG/ML. MOST RECENT INFUSION:20-MAR-2008
     Route: 042
     Dates: start: 20080110
  2. CARBOPLATIN [Suspect]
     Indication: NON-SMALL CELL LUNG CANCER
     Dosage: MOST RECENT INFUSION:20-MAR-2008
     Route: 042
     Dates: start: 20080110
  3. DOCETAXEL [Suspect]
     Indication: NON-SMALL CELL LUNG CANCER
     Dosage: MOST RECENT INFUSION:20-MAR-2008
     Route: 042
     Dates: start: 20080110

REACTIONS (2)
  - ANAEMIA [None]
  - CIRCULATORY COLLAPSE [None]
